FAERS Safety Report 24463063 (Version 1)
Quarter: 2024Q4

REPORT INFORMATION
  Report Type: Report from Study
  Country: US (occurrence: US)
  Receive Date: 20241018
  Receipt Date: 20241018
  Transmission Date: 20250115
  Serious: No
  Sender: ROCHE
  Company Number: US-ROCHE-2777745

PATIENT
  Age: 32 Year
  Sex: Female
  Weight: 120.0 kg

DRUGS (3)
  1. XOLAIR [Suspect]
     Active Substance: OMALIZUMAB
     Indication: Asthma
     Dosage: INJECT 375MG SUBCUTANEOUSLY EVERY 2 WEEK(S)?DATE OF DELEV ERY: 19/JAN/2021, 08/DEC/2020
     Route: 058
  2. XOLAIR [Suspect]
     Active Substance: OMALIZUMAB
     Indication: Asthma
     Dosage: INJECT 375MG SUBCUTANEOUSLY EVERY 2 WEEK(S)
     Route: 058
  3. LISINOPRIL [Concomitant]
     Active Substance: LISINOPRIL

REACTIONS (2)
  - Off label use [Unknown]
  - No adverse event [Unknown]
